FAERS Safety Report 22526392 (Version 1)
Quarter: 2023Q2

REPORT INFORMATION
  Report Type: Spontaneous
  Country: KR (occurrence: KR)
  Receive Date: 20230606
  Receipt Date: 20230606
  Transmission Date: 20230722
  Serious: Yes (Death, Hospitalization, Other)
  Sender: FDA-Public Use
  Company Number: KR-ORGANON-O2305KOR003221

PATIENT
  Sex: Female

DRUGS (18)
  1. COZAAR [Suspect]
     Active Substance: LOSARTAN POTASSIUM
     Dosage: UNK; FILM COATED TABLET
     Route: 048
     Dates: start: 20200802, end: 20200815
  2. LACTULOSE [Concomitant]
     Active Substance: LACTULOSE
     Dosage: UNK; FORMULATION: LIQUID SYRUP; REPORTED NAME: LACTULOSE CONCENTRATE SOLUTION
     Route: 048
     Dates: start: 20200802, end: 20200805
  3. FAMOTIDINE [Concomitant]
     Active Substance: FAMOTIDINE
     Dosage: UNK; FORMULATION: DRAGEE
     Route: 048
     Dates: start: 20200802, end: 20200805
  4. GLICLAZIDE [Concomitant]
     Active Substance: GLICLAZIDE
     Dosage: UNK
     Route: 048
     Dates: start: 20200802, end: 20200815
  5. AMLODIPINE BESYLATE [Concomitant]
     Active Substance: AMLODIPINE BESYLATE
     Dosage: UNK; FORMULATION: UNCOATED TABLET
     Route: 048
     Dates: start: 20200802, end: 20200815
  6. DULOXETINE HYDROCHLORIDE [Concomitant]
     Active Substance: DULOXETINE HYDROCHLORIDE
     Dosage: UNK; FORMULATION: ENTERIC CAPUSLE, PELLETS
     Route: 048
     Dates: start: 20200802, end: 20200815
  7. OXYCODONE HYDROCHLORIDE [Concomitant]
     Active Substance: OXYCODONE HYDROCHLORIDE
     Dosage: UNK; UNCOATED TABLET
     Route: 048
     Dates: start: 20200803, end: 20200803
  8. METOCLOPRAMIDE [Concomitant]
     Active Substance: METOCLOPRAMIDE
     Dosage: UNK
     Route: 048
     Dates: start: 20200803, end: 20200803
  9. HEPARIN SODIUM [Concomitant]
     Active Substance: HEPARIN SODIUM
     Dosage: UNK, ROUTE: VEIN
     Route: 042
     Dates: start: 20200803, end: 20200803
  10. DEXTROSE\SODIUM CHLORIDE [Concomitant]
     Active Substance: DEXTROSE\SODIUM CHLORIDE
     Dosage: UNK, ROUTE: VEIN
     Route: 042
     Dates: start: 20200803, end: 20200803
  11. MORPHINE HYDROCHLORIDE [Concomitant]
     Active Substance: MORPHINE HYDROCHLORIDE
     Dosage: UNK; REPORTED AS MORPHINE HYDROCHLORIDE HYDRATE
     Route: 058
     Dates: start: 20200803, end: 20200803
  12. SODIUM CHLORIDE [Concomitant]
     Active Substance: SODIUM CHLORIDE
     Dosage: UNK, ROUTE: VEIN
     Route: 042
     Dates: start: 20200803, end: 20200803
  13. SODIUM CHLORIDE [Concomitant]
     Active Substance: SODIUM CHLORIDE
     Dosage: UNK, ROUTE: VEIN
     Route: 042
     Dates: start: 20200803, end: 20200806
  14. SODIUM CHLORIDE [Concomitant]
     Active Substance: SODIUM CHLORIDE
     Dosage: UNK, ROUTE: VEIN
     Route: 042
     Dates: start: 20200803, end: 20200815
  15. MANNITOL [Concomitant]
     Active Substance: MANNITOL
     Dosage: UNK, ROUTE: VEIN
     Route: 042
     Dates: start: 20200803, end: 20200803
  16. HYDROMORPHONE HYDROCHLORIDE [Concomitant]
     Active Substance: HYDROMORPHONE HYDROCHLORIDE
     Dosage: UNK; UNCOATED TABLET
     Route: 048
     Dates: start: 20200803, end: 20200803
  17. GLUCOSE AND SODIUM CHLORIDE, POTASSIUM CHLORIDE [Concomitant]
     Dosage: UNK, ROUTE: VEIN
     Route: 042
     Dates: start: 20200803, end: 20200814
  18. IBUPROFEN [Concomitant]
     Active Substance: IBUPROFEN
     Dosage: UNK
     Dates: start: 20200803, end: 20200815

REACTIONS (2)
  - Death [Fatal]
  - Off label use [Unknown]

NARRATIVE: CASE EVENT DATE: 20200101
